FAERS Safety Report 20169544 (Version 1)
Quarter: 2021Q4

REPORT INFORMATION
  Report Type: Spontaneous
  Country: JP (occurrence: JP)
  Receive Date: 20211210
  Receipt Date: 20211210
  Transmission Date: 20220303
  Serious: Yes (Hospitalization, Other)
  Sender: FDA-Public Use
  Company Number: JP-ferring-EVA202101857FERRINGPH

PATIENT
  Age: 79 Year
  Sex: Female

DRUGS (1)
  1. DESMOPRESSIN ACETATE [Suspect]
     Active Substance: DESMOPRESSIN ACETATE
     Indication: Diabetes insipidus
     Dosage: 60 UG, 1 TIME DAILY
     Route: 065

REACTIONS (6)
  - Renal impairment [Unknown]
  - Blood sodium increased [Unknown]
  - Blood chloride increased [Unknown]
  - Therapeutic response decreased [Unknown]
  - Labelled drug-disease interaction medication error [Not Recovered/Not Resolved]
  - Contraindicated product administered [Not Recovered/Not Resolved]
